FAERS Safety Report 17397128 (Version 2)
Quarter: 2020Q1

REPORT INFORMATION
  Report Type: Spontaneous
  Country: IT (occurrence: IT)
  Receive Date: 20200210
  Receipt Date: 20200217
  Transmission Date: 20200409
  Serious: Yes (Other)
  Sender: FDA-Public Use
  Company Number: IT-PFIZER INC-2020056563

PATIENT
  Age: 41 Year
  Sex: Male
  Weight: 70 kg

DRUGS (8)
  1. LANSOPRAZOLE. [Suspect]
     Active Substance: LANSOPRAZOLE
     Dosage: UNK
  2. IMODIUM [Suspect]
     Active Substance: LOPERAMIDE HYDROCHLORIDE
     Dosage: 2 MG, UNK
     Route: 048
  3. LEVOBREN [Suspect]
     Active Substance: LEVOSULPIRIDE
     Dosage: UNK
     Route: 048
  4. BISOPROLOLO [Suspect]
     Active Substance: BISOPROLOL FUMARATE
     Dosage: 1.25 MG, UNK
     Route: 048
  5. OKI [Suspect]
     Active Substance: KETOPROFEN LYSINE
     Dosage: UNK
  6. DIAZEPAM. [Suspect]
     Active Substance: DIAZEPAM
     Dosage: 5 MG, UNK
     Route: 048
  7. BENTELAN [Suspect]
     Active Substance: BETAMETHASONE SODIUM PHOSPHATE
     Dosage: UNK
  8. DEPAKINE [VALPROIC ACID] [Suspect]
     Active Substance: VALPROIC ACID
     Dosage: 25 MG, UNK
     Route: 048

REACTIONS (2)
  - Sopor [Unknown]
  - Intentional self-injury [Unknown]
